FAERS Safety Report 23575009 (Version 1)
Quarter: 2024Q1

REPORT INFORMATION
  Report Type: Spontaneous
  Country: US (occurrence: US)
  Receive Date: 20240228
  Receipt Date: 20240228
  Transmission Date: 20240409
  Serious: No
  Sender: FDA-Public Use
  Company Number: US-SA-SAC20240222000940

PATIENT
  Sex: Male

DRUGS (9)
  1. DUPIXENT [Suspect]
     Active Substance: DUPILUMAB
     Indication: Dermatitis atopic
     Dosage: 200 MG, QOW
     Route: 058
  2. AMLODIPINE [Concomitant]
     Active Substance: AMLODIPINE BESYLATE
  3. EUCRISA [Concomitant]
     Active Substance: CRISABOROLE
  4. GUANFACINE [Concomitant]
     Active Substance: GUANFACINE
  5. KETOCONAZOLE [Concomitant]
     Active Substance: KETOCONAZOLE
  6. LORATADINE [Concomitant]
     Active Substance: LORATADINE
  7. MELATONIN [Concomitant]
     Active Substance: MELATONIN
  8. HYDROCHLOROTHIAZIDE [Concomitant]
     Active Substance: HYDROCHLOROTHIAZIDE
  9. METHYLPHENIDATE [Concomitant]
     Active Substance: METHYLPHENIDATE

REACTIONS (1)
  - Sleep disorder due to a general medical condition [Unknown]
